FAERS Safety Report 6112325-2 (Version None)
Quarter: 2009Q1

REPORT INFORMATION
  Report Type: 
  Country: None (occurrence: None)
  Receive Date: 20090311
  Receipt Date: 20090311
  Transmission Date: 20090719
  Serious: Yes (Disabling)
  Sender: FDA-Public Use
  Company Number: None

PATIENT
  Sex: Male
  Weight: 81.6475 kg

DRUGS (5)
  1. VIAGRA [Suspect]
     Indication: ERECTILE DYSFUNCTION
     Dosage: 50 MG PRN ORAL SOMETIME
     Route: 048
     Dates: start: 20080101
  2. SINGULAIR [Concomitant]
  3. ADVAIR HFA [Concomitant]
  4. COMBIVENT [Concomitant]
  5. MUCINEX [Concomitant]

REACTIONS (1)
  - PEYRONIE'S DISEASE [None]
